FAERS Safety Report 12850733 (Version 2)
Quarter: 2016Q4

REPORT INFORMATION
  Report Type: Spontaneous
  Country: US (occurrence: US)
  Receive Date: 20161014
  Receipt Date: 20161028
  Transmission Date: 20170207
  Serious: Yes (Other)
  Sender: FDA-Public Use
  Company Number: US-TEVA-702931USA

PATIENT
  Age: 75 Year
  Sex: Female

DRUGS (1)
  1. COPAXONE [Suspect]
     Active Substance: GLATIRAMER ACETATE
     Indication: MULTIPLE SCLEROSIS
     Route: 058
     Dates: start: 20140519

REACTIONS (7)
  - Multiple sclerosis relapse [Not Recovered/Not Resolved]
  - Body temperature increased [Unknown]
  - Pyrexia [Unknown]
  - Asthenia [Not Recovered/Not Resolved]
  - Chills [Unknown]
  - Dizziness [Not Recovered/Not Resolved]
  - Vomiting [Unknown]

NARRATIVE: CASE EVENT DATE: 201610
